FAERS Safety Report 25958286 (Version 1)
Quarter: 2025Q4

REPORT INFORMATION
  Report Type: Report from Study
  Country: CO (occurrence: CO)
  Receive Date: 20251024
  Receipt Date: 20251024
  Transmission Date: 20260117
  Serious: Yes (Death)
  Sender: ABBVIE
  Company Number: CO-ABBVIE-6517445

PATIENT
  Age: 45 Year
  Sex: Female

DRUGS (1)
  1. VENCLEXTA [Suspect]
     Active Substance: VENETOCLAX
     Indication: Acute myeloid leukaemia
     Dosage: VENCLEXTA BOTTLE ?FORM STRENGTH: 100 MILLIGRAM
     Route: 048
     Dates: start: 20250111, end: 20250926

REACTIONS (1)
  - Investigation abnormal [Fatal]

NARRATIVE: CASE EVENT DATE: 20250901
